FAERS Safety Report 20819540 (Version 1)
Quarter: 2022Q2

REPORT INFORMATION
  Report Type: Spontaneous
  Country: US (occurrence: US)
  Receive Date: 20220512
  Receipt Date: 20220512
  Transmission Date: 20220721
  Serious: No
  Sender: FDA-Public Use
  Company Number: US-AMNEAL PHARMACEUTICALS-2021-AMRX-01063

PATIENT
  Sex: Male

DRUGS (1)
  1. DICLOFENAC SODIUM [Suspect]
     Active Substance: DICLOFENAC SODIUM
     Indication: Arthralgia
     Dosage: UNK UNK, 3X/DAY
     Route: 061
     Dates: start: 202103, end: 202103

REACTIONS (2)
  - Drug ineffective [Unknown]
  - Musculoskeletal stiffness [Recovering/Resolving]

NARRATIVE: CASE EVENT DATE: 20210301
